FAERS Safety Report 22960589 (Version 2)
Quarter: 2024Q1

REPORT INFORMATION
  Report Type: Spontaneous
  Country: US (occurrence: US)
  Receive Date: 20230920
  Receipt Date: 20240125
  Transmission Date: 20240409
  Serious: No
  Sender: FDA-Public Use
  Company Number: US-BRISTOL-MYERS SQUIBB COMPANY-2023-132087

PATIENT
  Age: 75 Year
  Sex: Female
  Weight: 42.18 kg

DRUGS (1)
  1. REVLIMID [Suspect]
     Active Substance: LENALIDOMIDE
     Indication: Plasma cell myeloma
     Dosage: 21D OUT OF 28D/3WKSON,1WKOFF
     Route: 048
     Dates: start: 20230701

REACTIONS (1)
  - Adverse event [Unknown]
